FAERS Safety Report 6375605-1 (Version None)
Quarter: 2009Q3

REPORT INFORMATION
  Report Type: 
  Country: None (occurrence: None)
  Receive Date: 20090924
  Receipt Date: 20090921
  Transmission Date: 20100115
  Serious: Yes (Hospitalization)
  Sender: FDA-Public Use
  Company Number: US-ROXANE LABORATORIES, INC.-2009-RO-00980RO

PATIENT
  Sex: Male

DRUGS (3)
  1. PREDNISONE TAB [Suspect]
     Indication: DERMATITIS ATOPIC
  2. CRESTOR [Concomitant]
  3. RECLAST [Concomitant]
     Indication: OSTEOPOROSIS

REACTIONS (6)
  - BONE DENSITY ABNORMAL [None]
  - FOOT FRACTURE [None]
  - HIP ARTHROPLASTY [None]
  - OSTEOPOROSIS [None]
  - PAIN [None]
  - RIB FRACTURE [None]
